FAERS Safety Report 16450985 (Version 1)
Quarter: 2019Q3

REPORT INFORMATION
  Report Type: Spontaneous
  Country: US (occurrence: US)
  Receive Date: 20190618
  Receipt Date: 20190618
  Transmission Date: 20191004
  Serious: Yes (Other)
  Sender: FDA-Public Use
  Company Number: None

PATIENT
  Age: 76 Year
  Sex: Male
  Weight: 78.2 kg

DRUGS (2)
  1. HEPARIN 10,000 UNITS/10ML [Suspect]
     Active Substance: HEPARIN SODIUM
     Indication: ANTICOAGULANT THERAPY
     Dosage: ?          OTHER FREQUENCY:MULTIPLE ONETIME;?
     Route: 042
     Dates: start: 20190605, end: 20190605
  2. SODIUM CHLORIDE 0.9% [Concomitant]
     Active Substance: SODIUM CHLORIDE
     Dates: start: 20190605, end: 20190605

REACTIONS (1)
  - Coagulation time abnormal [None]

NARRATIVE: CASE EVENT DATE: 20190605
